FAERS Safety Report 12693025 (Version 1)
Quarter: 2016Q3

REPORT INFORMATION
  Report Type: Spontaneous
  Country: US (occurrence: None)
  Receive Date: 20160826
  Receipt Date: 20160826
  Transmission Date: 20161109
  Serious: Yes (Hospitalization, Disabling)
  Sender: FDA-Public Use
  Company Number: None

PATIENT
  Age: 68 Year
  Sex: Female
  Weight: 75.75 kg

DRUGS (17)
  1. ESCITALOPRAM [Concomitant]
     Active Substance: ESCITALOPRAM OXALATE
  2. LEVOTHYROXINE. [Concomitant]
     Active Substance: LEVOTHYROXINE
  3. DOXEPIN [Concomitant]
     Active Substance: DOXEPIN
  4. OLANAZAPINE [Concomitant]
  5. RISPERIDONE. [Concomitant]
     Active Substance: RISPERIDONE
  6. MULTI-VITAMIN [Concomitant]
     Active Substance: .ALPHA.-TOCOPHEROL ACETATE, DL-\ASCORBIC ACID\CYANOCOBALAMIN\FLUORIDE ION\FOLIC ACID\NIACIN\PYRIDOXINE\RIBOFLAVIN\THIAMINE\VITAMIN A\VITAMIN D
  7. VITAMIN B12 [Concomitant]
     Active Substance: CYANOCOBALAMIN
  8. VYBRID [Concomitant]
  9. ANASTROZOLE. [Concomitant]
     Active Substance: ANASTROZOLE
  10. HAIR, SKIN, AND NAILS [Concomitant]
  11. LISINOPRIL. [Concomitant]
     Active Substance: LISINOPRIL
  12. FLUTICASONE SPRAY [Concomitant]
  13. LATUDA [Suspect]
     Active Substance: LURASIDONE HYDROCHLORIDE
     Indication: DEPRESSION
     Route: 048
     Dates: start: 20150928, end: 20151028
  14. LAMOTRIGINE. [Concomitant]
     Active Substance: LAMOTRIGINE
  15. CETIRIZINE [Concomitant]
     Active Substance: CETIRIZINE HYDROCHLORIDE
  16. ATORVASTATIN [Concomitant]
     Active Substance: ATORVASTATIN
  17. CALCIUM WITH D3 [Concomitant]

REACTIONS (3)
  - Therapy cessation [None]
  - Lethargy [None]
  - Depression [None]

NARRATIVE: CASE EVENT DATE: 20151128
